FAERS Safety Report 5068676-6 (Version None)
Quarter: 2006Q3

REPORT INFORMATION
  Report Type: 
  Country: None (occurrence: None)
  Receive Date: 20060802
  Receipt Date: 20060207
  Transmission Date: 20061208
  Serious: No
  Sender: FDA-Public Use
  Company Number: US-BRISTOL-MYERS SQUIBB COMPANY-13274071

PATIENT
  Age: 79 Year
  Sex: Female

DRUGS (6)
  1. COUMADIN [Suspect]
     Indication: MYOCARDIAL INFARCTION
     Dates: start: 20051001, end: 20060204
  2. COUMADIN [Suspect]
     Indication: STENT PLACEMENT
     Dates: start: 20051001, end: 20060204
  3. VERAPAMIL [Concomitant]
  4. DYAZIDE [Concomitant]
  5. CATAPRES [Concomitant]
  6. PRILOSEC [Concomitant]

REACTIONS (1)
  - ALOPECIA [None]
